FAERS Safety Report 4383699-8 (Version None)
Quarter: 2004Q2

REPORT INFORMATION
  Report Type: 
  Country: None (occurrence: None)
  Receive Date: 20040618
  Receipt Date: 20040604
  Transmission Date: 20050107
  Serious: Yes (Hospitalization)
  Sender: FDA-Public Use
  Company Number: 430005M04FRA

PATIENT
  Age: 53 Year
  Sex: Male

DRUGS (2)
  1. NOVANTRONE [Suspect]
     Indication: ACUTE MYELOID LEUKAEMIA
     Dosage: 22 MG, 1 IN 1 DAYS, INTRAVENOUS
     Route: 042
     Dates: start: 20030706, end: 20030707
  2. CYTARABINE [Suspect]
     Indication: ACUTE MYELOID LEUKAEMIA
     Dosage: 5.6 G, 1 IN 1 DAYS, INTRAVENOUS
     Route: 042
     Dates: start: 20030702, end: 20030705

REACTIONS (5)
  - BACTERAEMIA [None]
  - CANDIDA PNEUMONIA [None]
  - CATHETER RELATED INFECTION [None]
  - PULMONARY HAEMORRHAGE [None]
  - STAPHYLOCOCCAL INFECTION [None]
